FAERS Safety Report 19647405 (Version 8)
Quarter: 2021Q4

REPORT INFORMATION
  Report Type: Report from Study
  Country: US (occurrence: US)
  Receive Date: 20210802
  Receipt Date: 20211112
  Transmission Date: 20220303
  Serious: Yes (Death, Hospitalization)
  Sender: FDA-Public Use
  Company Number: US-JNJFOC-20210715161

PATIENT
  Age: 90 Year
  Sex: Male
  Weight: 72.5 kg

DRUGS (15)
  1. NIRAPARIB [Suspect]
     Active Substance: NIRAPARIB
     Indication: Prostate cancer metastatic
     Dosage: 2- 100 MG CAPSULES DAILY
     Route: 048
     Dates: start: 20210614, end: 20210701
  2. ABIRATERONE ACETATE [Suspect]
     Active Substance: ABIRATERONE ACETATE
     Indication: Prostate cancer metastatic
     Dosage: 4 250 MG TABLETS DAILY
     Route: 048
     Dates: start: 20210614, end: 20210701
  3. ABIRATERONE ACETATE [Suspect]
     Active Substance: ABIRATERONE ACETATE
     Indication: Prostate cancer metastatic
     Dosage: DOSE: 50/500 LOW-STRENGTH
     Route: 048
     Dates: start: 20210614, end: 20210620
  4. ABIRATERONE ACETATE [Suspect]
     Active Substance: ABIRATERONE ACETATE
     Dosage: DOSE: 100/500 REGULAR-STRENGTH; 2 TABLETS DAILY
     Route: 048
     Dates: start: 20210621, end: 20210701
  5. ABIRATERONE ACETATE [Suspect]
     Active Substance: ABIRATERONE ACETATE
     Dosage: 200/1000 MG
     Route: 048
     Dates: start: 20210702, end: 20210704
  6. PREDNISONE [Suspect]
     Active Substance: PREDNISONE
     Indication: Prostate cancer
     Dosage: UNK
     Route: 048
     Dates: start: 20210621, end: 20210704
  7. PREDNISONE [Suspect]
     Active Substance: PREDNISONE
     Indication: Myasthenia gravis
  8. MESTINON [Concomitant]
     Active Substance: PYRIDOSTIGMINE BROMIDE
     Indication: Myasthenia gravis
     Dosage: 30 MG, TID
     Route: 048
     Dates: start: 20210301, end: 20210724
  9. METHOTREXATE [Concomitant]
     Active Substance: METHOTREXATE
     Indication: Myasthenia gravis
     Dosage: 15 MG, WE, Q3W
     Route: 048
     Dates: start: 20210301, end: 20210724
  10. LEVOTHYROXINE [Concomitant]
     Active Substance: LEVOTHYROXINE
     Indication: Hypothyroidism
     Dosage: 100 ?G, QD
     Route: 048
     Dates: start: 20180101, end: 20210724
  11. APIXABAN [Concomitant]
     Active Substance: APIXABAN
     Indication: Atrial fibrillation
     Dosage: 2.5 MG, BID
     Route: 048
     Dates: start: 20190101, end: 20210724
  12. OMEPRAZOLE [Concomitant]
     Active Substance: OMEPRAZOLE
     Indication: Gastrooesophageal reflux disease
     Dosage: 20 MG, QD
     Route: 048
     Dates: start: 20210301, end: 20210724
  13. DENOSUMAB [Concomitant]
     Active Substance: DENOSUMAB
     Indication: Prophylaxis
     Dosage: UNK
     Route: 058
     Dates: start: 20190101, end: 20210724
  14. PREDNISONE [Concomitant]
     Active Substance: PREDNISONE
     Indication: Myasthenia gravis
     Dosage: UNK, QD
     Route: 048
     Dates: start: 20210301, end: 20210620
  15. DILTIAZEM [Concomitant]
     Active Substance: DILTIAZEM
     Indication: Pleural effusion
     Dosage: UNK
     Route: 065
     Dates: start: 20210714, end: 20210717

REACTIONS (5)
  - Cardiac failure [Fatal]
  - Hyponatraemia [Recovered/Resolved]
  - Mental status changes [Recovered/Resolved]
  - Nausea [Recovered/Resolved]
  - Asthenia [Recovered/Resolved]

NARRATIVE: CASE EVENT DATE: 20210704
